FAERS Safety Report 23176362 (Version 1)
Quarter: 2023Q4

REPORT INFORMATION
  Report Type: Spontaneous
  Country: US (occurrence: US)
  Receive Date: 20231113
  Receipt Date: 20231113
  Transmission Date: 20240109
  Serious: Yes (Other)
  Sender: FDA-Public Use
  Company Number: US-JNJFOC-20231116717

PATIENT
  Age: 55 Year
  Sex: Female
  Weight: 110.5 kg

DRUGS (5)
  1. OPSUMIT [Suspect]
     Active Substance: MACITENTAN
     Indication: Product used for unknown indication
     Route: 048
  2. TREPROSTINIL SODIUM [Suspect]
     Active Substance: TREPROSTINIL SODIUM
     Indication: Pulmonary arterial hypertension
     Route: 058
     Dates: start: 202301
  3. TADALAFIL [Suspect]
     Active Substance: TADALAFIL
     Indication: Product used for unknown indication
     Route: 065
     Dates: start: 2023
  4. TADALAFIL [Suspect]
     Active Substance: TADALAFIL
     Route: 065
     Dates: start: 2023
  5. ADEMPAS [Concomitant]
     Active Substance: RIOCIGUAT
     Dates: end: 2023

REACTIONS (17)
  - Ascites [Not Recovered/Not Resolved]
  - Infusion site pain [Unknown]
  - Headache [Not Recovered/Not Resolved]
  - Nausea [Recovering/Resolving]
  - Pain [Unknown]
  - Diarrhoea [Not Recovered/Not Resolved]
  - Cough [Unknown]
  - Dizziness [Recovering/Resolving]
  - Arthralgia [Unknown]
  - Pain in extremity [Unknown]
  - Oedema peripheral [Unknown]
  - Chest pain [Unknown]
  - Balance disorder [Unknown]
  - Fatigue [Unknown]
  - Dyspnoea [Unknown]
  - Chest discomfort [Unknown]
  - Dyspnoea exertional [Unknown]

NARRATIVE: CASE EVENT DATE: 20230101
